FAERS Safety Report 5301858-4 (Version None)
Quarter: 2007Q2

REPORT INFORMATION
  Report Type: 
  Country: None (occurrence: None)
  Receive Date: 20070419
  Receipt Date: 20070411
  Transmission Date: 20071010
  Serious: Yes (Hospitalization)
  Sender: FDA-Public Use
  Company Number: FR-ROCHE-416939

PATIENT
  Age: 65 Year
  Sex: Male

DRUGS (23)
  1. DACLIZUMAB [Suspect]
     Route: 042
     Dates: start: 20050416, end: 20050416
  2. MYCOPHENOLATE MOFETIL [Suspect]
     Route: 042
     Dates: start: 20050415, end: 20050417
  3. MYCOPHENOLATE MOFETIL [Suspect]
     Dosage: ADVERSE EVENT/TOXICITY.
     Route: 048
     Dates: start: 20050418, end: 20050525
  4. MYCOPHENOLATE MOFETIL [Suspect]
     Route: 048
     Dates: start: 20050526, end: 20050701
  5. TACROLIMUS [Suspect]
     Dosage: ADJUSTED TO REACH PREDEFINED TARGET LEVELS.
     Route: 048
     Dates: start: 20050419
  6. METHYLPREDNISOLONE 4MG TAB [Suspect]
     Dosage: TAPER ACCORDING TO LOCAL PROTOCOL.
     Route: 065
     Dates: start: 20050415, end: 20050421
  7. PREDNISONE TAB [Suspect]
     Dosage: TAPER ACCORDING TO LOCAL PROTOCOL.
     Route: 065
     Dates: start: 20050422
  8. NEFOPAM [Concomitant]
     Indication: PROPHYLAXIS
     Dates: start: 20050415, end: 20050417
  9. PARACETAMOL [Concomitant]
     Indication: PROPHYLAXIS
     Dates: start: 20050415, end: 20050420
  10. OMEPRAZOLE [Concomitant]
     Indication: PROPHYLAXIS
     Dates: start: 20050415, end: 20050803
  11. URAPIDIL [Concomitant]
     Indication: HYPERTENSION
     Dates: start: 20050415, end: 20050420
  12. TAZOCILLINE [Concomitant]
     Indication: PROPHYLAXIS
     Dates: start: 20050415, end: 20050418
  13. AMLODIPINE [Concomitant]
     Indication: HYPERTENSION
     Dates: start: 20050418, end: 20050511
  14. ACEBUTOLOL [Concomitant]
     Indication: HYPERTENSION
     Dates: start: 20050419
  15. BACTRIM [Concomitant]
     Indication: PROPHYLAXIS
     Dates: start: 20050425
  16. BROMAZEPAM [Concomitant]
     Indication: INSOMNIA
     Dates: start: 20050417, end: 20050511
  17. DUPHALAC [Concomitant]
     Indication: CONSTIPATION
     Dates: start: 20050423, end: 20050425
  18. PHLOROGLUCINOL [Concomitant]
     Dates: start: 20050423, end: 20050425
  19. TRIMEBUTINE [Concomitant]
     Dates: start: 20050422, end: 20050425
  20. RIBAVIRIN [Concomitant]
     Indication: HEPATITIS C
     Dates: start: 20050502
  21. PEG-INTERFERON ALFA 2A [Concomitant]
     Indication: HEPATITIS C
     Dates: start: 20050502
  22. AMPHOTERICIN B [Concomitant]
     Dates: start: 20050511, end: 20050516
  23. LENOGRASTIM [Concomitant]
     Dates: start: 20050523

REACTIONS (1)
  - CYTOMEGALOVIRUS TEST [None]
